FAERS Safety Report 24019282 (Version 1)
Quarter: 2024Q2

REPORT INFORMATION
  Report Type: Spontaneous
  Country: AU (occurrence: AU)
  Receive Date: 20240627
  Receipt Date: 20240627
  Transmission Date: 20240716
  Serious: Yes (Other)
  Sender: FDA-Public Use
  Company Number: AU-CHEPLA-2024007887

PATIENT
  Age: 39 Year
  Sex: Female

DRUGS (1)
  1. OLANZAPINE [Suspect]
     Active Substance: OLANZAPINE
     Indication: Product used for unknown indication

REACTIONS (9)
  - Faecaloma [Unknown]
  - Loss of consciousness [Unknown]
  - Urinary retention [Unknown]
  - Dyspnoea [Unknown]
  - Vision blurred [Unknown]
  - Weight decreased [Unknown]
  - Dehydration [Unknown]
  - Dry mouth [Unknown]
  - Dizziness [Unknown]
